FAERS Safety Report 7322057-0 (Version None)
Quarter: 2011Q1

REPORT INFORMATION
  Report Type: 
  Country: None (occurrence: None)
  Receive Date: 20110228
  Receipt Date: 20110215
  Transmission Date: 20110831
  Serious: Yes (Other)
  Sender: FDA-Public Use
  Company Number: PHHY2011IT13042

PATIENT
  Age: 4 Year
  Sex: Female

DRUGS (3)
  1. CYCLOSPORINE [Suspect]
     Indication: NEPHROTIC SYNDROME
     Dosage: 5 MG/KG, UNK
  2. ACYCLOVIR [Concomitant]
     Dosage: 1200 MG/M2,
  3. ACYCLOVIR [Concomitant]
     Dosage: 1500 MG/M2,

REACTIONS (7)
  - RENAL FAILURE ACUTE [None]
  - RENAL INJURY [None]
  - NEPHROPATHY TOXIC [None]
  - TUBULOINTERSTITIAL NEPHRITIS [None]
  - HAEMODYNAMIC INSTABILITY [None]
  - VARICELLA [None]
  - RENAL IMPAIRMENT [None]
